FAERS Safety Report 21626874 (Version 1)
Quarter: 2022Q4

REPORT INFORMATION
  Report Type: Spontaneous
  Country: US (occurrence: None)
  Receive Date: 20221121
  Receipt Date: 20221121
  Transmission Date: 20230113
  Serious: Yes (Hospitalization)
  Sender: FDA-Public Use
  Company Number: None

PATIENT
  Age: 60 Year
  Sex: Female

DRUGS (10)
  1. DALFAMPRIDINE [Suspect]
     Active Substance: DALFAMPRIDINE
     Indication: Multiple sclerosis
     Dosage: FREQUENCY : DAILY;?
     Route: 048
     Dates: start: 20190123
  2. BACLOFEN TAB [Concomitant]
  3. CALCIFEROL DRO [Concomitant]
  4. CO Q-10 CAP [Concomitant]
  5. LEXAPRO [Concomitant]
     Active Substance: ESCITALOPRAM OXALATE
  6. SOD CHLORIDE TAB [Concomitant]
  7. TRILEPTAL TAB [Concomitant]
  8. VITAMIN B-12 TAB [Concomitant]
  9. VITAMIN D TAB [Concomitant]
  10. VUMERITY CAP [Concomitant]

REACTIONS (1)
  - Hospitalisation [None]

NARRATIVE: CASE EVENT DATE: 20221119
